FAERS Safety Report 12239303 (Version 3)
Quarter: 2016Q2

REPORT INFORMATION
  Report Type: Report from Study
  Country: US (occurrence: US)
  Receive Date: 20160405
  Receipt Date: 20160614
  Transmission Date: 20160815
  Serious: Yes (Hospitalization)
  Sender: FDA-Public Use
  Company Number: GXBR2016US000918

PATIENT
  Age: 1 Year
  Sex: Male

DRUGS (12)
  1. OMNITROPE [Suspect]
     Active Substance: SOMATROPIN
     Indication: DWARFISM
     Dosage: 0.3 MG, QD
     Route: 065
     Dates: start: 201601
  2. HYDROCORTISONE. [Concomitant]
     Active Substance: HYDROCORTISONE
     Indication: PRODUCT USED FOR UNKNOWN INDICATION
     Dosage: 0.9 ML, TID
     Route: 065
  3. TYLENOL WITH CODEINE [Concomitant]
     Active Substance: ACETAMINOPHEN\CODEINE PHOSPHATE
     Indication: PAIN
     Dosage: UNK DF, Q8H
     Route: 065
  4. VITAMIN B COMPLEX [Concomitant]
     Active Substance: CYANOCOBALAMIN\DEXPANTHENOL\NIACINAMIDE\PYRIDOXINE HYDROCHLORIDE\RIBOFLAVIN 5^-PHOSPHATE SODIUM\THIAMINE HYDROCHLORIDE\VITAMIN B COMPLEX
     Indication: SEIZURE
     Dosage: 1 ML, BID
     Route: 065
  5. EMPOWER PLUS [Concomitant]
     Indication: SEIZURE
     Dosage: 1/2 DF, BID
     Route: 065
  6. OMNITROPE [Suspect]
     Active Substance: SOMATROPIN
     Indication: GROWTH HORMONE DEFICIENCY
  7. FLAXSEED [Concomitant]
     Active Substance: FLAX SEED
     Indication: SEIZURE
     Dosage: 1 ML, BID
     Route: 065
  8. KEPPRA [Suspect]
     Active Substance: LEVETIRACETAM
     Indication: SEIZURE
     Dosage: 3 ML, BID
     Route: 065
  9. POLY VI SOL//VITAMINS NOS [Concomitant]
     Indication: SEIZURE
     Dosage: 0.5 ML, BID
     Route: 065
  10. ZANTAC [Concomitant]
     Active Substance: RANITIDINE HYDROCHLORIDE
     Indication: GASTROOESOPHAGEAL REFLUX DISEASE
     Dosage: 2 ML, BID
     Route: 065
  11. ULTRA FLORA IB [Concomitant]
     Indication: PROBIOTIC THERAPY
     Dosage: 1 DF, BID
     Route: 065
  12. VITAMIN D [Concomitant]
     Active Substance: CHOLECALCIFEROL
     Indication: SEIZURE
     Dosage: 0.1 ML, BID
     Route: 065

REACTIONS (2)
  - Seizure [Recovered/Resolved]
  - Injection site discomfort [Unknown]

NARRATIVE: CASE EVENT DATE: 20160517
